FAERS Safety Report 13098339 (Version 1)
Quarter: 2017Q1

REPORT INFORMATION
  Report Type: Spontaneous
  Country: ES (occurrence: ES)
  Receive Date: 20170109
  Receipt Date: 20170109
  Transmission Date: 20170428
  Serious: Yes (Hospitalization, Other)
  Sender: FDA-Public Use
  Company Number: ES-MYLANLABS-2016M1059315

PATIENT

DRUGS (9)
  1. LACTULOSE. [Concomitant]
     Active Substance: LACTULOSE
     Indication: CONSTIPATION
     Route: 065
  2. MORPHINE [Suspect]
     Active Substance: MORPHINE
     Indication: PAIN IN EXTREMITY
     Dosage: 20MG EVERY 12 HOURS
     Route: 048
  3. MORPHINE [Suspect]
     Active Substance: MORPHINE
     Dosage: 80MG DAILY ON DAYS 3 AND 4
     Route: 048
  4. MORPHINE [Suspect]
     Active Substance: MORPHINE
     Dosage: 100MG DAILY ON DAYS 5 AND 6
     Route: 048
  5. MORPHINE [Suspect]
     Active Substance: MORPHINE
     Dosage: 120MG DAILY ON DAYS 7 AND 8
     Route: 048
  6. PREGABALIN. [Concomitant]
     Active Substance: PREGABALIN
     Indication: PAIN IN EXTREMITY
     Route: 048
  7. CEFUROXIME. [Concomitant]
     Active Substance: CEFUROXIME
     Indication: PAIN IN EXTREMITY
     Route: 048
  8. IBUPROFEN. [Concomitant]
     Active Substance: IBUPROFEN
     Indication: PRODUCT USED FOR UNKNOWN INDICATION
     Dosage: 600MG IN THE MORNING, AT LUNCH AND IN THE EVENING
     Route: 048
  9. PARACETAMOL [Concomitant]
     Active Substance: ACETAMINOPHEN
     Indication: PAIN IN EXTREMITY
     Dosage: 1G AS NEEDED
     Route: 048

REACTIONS (1)
  - Deafness [Recovering/Resolving]
